FAERS Safety Report 12237507 (Version 1)
Quarter: 2016Q2

REPORT INFORMATION
  Report Type: Report from Study
  Country: NL (occurrence: NL)
  Receive Date: 20160405
  Receipt Date: 20160405
  Transmission Date: 20160815
  Serious: Yes (Hospitalization)
  Sender: FDA-Public Use
  Company Number: NL-AMGEN-NLDSL2016014619

PATIENT
  Age: 91 Year
  Sex: Female

DRUGS (3)
  1. ARANESP [Suspect]
     Active Substance: DARBEPOETIN ALFA
     Indication: ANAEMIA
     Dosage: 0.3 ML (500MCG/ML) Q2WK
     Route: 058
  2. ARANESP [Suspect]
     Active Substance: DARBEPOETIN ALFA
     Indication: NEPHROGENIC ANAEMIA
     Dosage: UNK
     Route: 058
  3. ARANESP [Suspect]
     Active Substance: DARBEPOETIN ALFA
     Dosage: UNK
     Route: 058

REACTIONS (4)
  - Bradycardia [Recovered/Resolved]
  - Oedema peripheral [Not Recovered/Not Resolved]
  - Intentional product misuse [Unknown]
  - Rash macular [Unknown]

NARRATIVE: CASE EVENT DATE: 20160126
